FAERS Safety Report 4644206-5 (Version None)
Quarter: 2005Q2

REPORT INFORMATION
  Report Type: 
  Country: None (occurrence: None)
  Receive Date: 20050331
  Receipt Date: 20050106
  Transmission Date: 20051028
  Serious: No
  Sender: FDA-Public Use
  Company Number: 05P-163-0285550-00

PATIENT
  Age: 73 Year
  Sex: Female
  Weight: 103 kg

DRUGS (8)
  1. HUMIRA [Suspect]
     Indication: RHEUMATOID ARTHRITIS
     Dosage: 40 MG, 1 IN 2 WK, SUBCUTANEOUS
     Route: 058
     Dates: start: 20040101
  2. AMLODIPINE BESYLATE [Concomitant]
  3. METOPROLOL SUCCINATE [Concomitant]
  4. HYDROXYCHLOROQUINE PHOSPHATE [Concomitant]
  5. MULTI-VITAMINS [Concomitant]
  6. LEKOVIT CA [Concomitant]
  7. FUROSEMIDE [Concomitant]
  8. VICODIN [Concomitant]

REACTIONS (4)
  - ASTHENIA [None]
  - BACK PAIN [None]
  - DYSPHONIA [None]
  - FALL [None]
